FAERS Safety Report 16080917 (Version 1)
Quarter: 2019Q1

REPORT INFORMATION
  Report Type: Spontaneous
  Country: CA (occurrence: CA)
  Receive Date: 20190316
  Receipt Date: 20190316
  Transmission Date: 20190418
  Serious: Yes (Hospitalization)
  Sender: FDA-Public Use
  Company Number: CA-AUROBINDO-AUR-APL-2019-013934

PATIENT

DRUGS (6)
  1. ABILIFY MAINTENA [Interacting]
     Active Substance: ARIPIPRAZOLE
     Indication: PRODUCT USED FOR UNKNOWN INDICATION
     Dosage: 2.0 GRAM
     Route: 030
  2. CYMBALTA [Interacting]
     Active Substance: DULOXETINE HYDROCHLORIDE
     Dosage: 30.0 MILLIGRAM
     Route: 065
  3. CLONAZEPAM. [Interacting]
     Active Substance: CLONAZEPAM
     Indication: INSOMNIA
     Dosage: 1.0 DOSAGE FORM, DAILY
     Route: 065
  4. CYMBALTA [Interacting]
     Active Substance: DULOXETINE HYDROCHLORIDE
     Indication: PRODUCT USED FOR UNKNOWN INDICATION
     Dosage: 90.0 MILLIGRAM
     Route: 065
  5. CYMBALTA [Interacting]
     Active Substance: DULOXETINE HYDROCHLORIDE
     Dosage: 60.0 MILLIGRAM
     Route: 065
  6. QUETIAPINE FILM-COATED TABLET [Suspect]
     Active Substance: QUETIAPINE
     Indication: INSOMNIA
     Dosage: 25.0 MILLIGRAM, DAILY
     Route: 048

REACTIONS (6)
  - Abnormal behaviour [Unknown]
  - Drug interaction [Unknown]
  - Stubbornness [Unknown]
  - Thinking abnormal [Unknown]
  - Mood altered [Unknown]
  - Product use issue [Unknown]
